FAERS Safety Report 23884342 (Version 1)
Quarter: 2024Q2

REPORT INFORMATION
  Report Type: Spontaneous
  Country: US (occurrence: US)
  Receive Date: 20240522
  Receipt Date: 20240522
  Transmission Date: 20240715
  Serious: No
  Sender: FDA-Public Use
  Company Number: US-CATALYST PHARMACEUTICALS-US-CATA-24-00298

PATIENT
  Age: 5 Year
  Sex: Male
  Weight: 24.943 kg

DRUGS (7)
  1. AGAMREE [Suspect]
     Active Substance: VAMOROLONE
     Indication: Duchenne muscular dystrophy
     Dosage: 3.5 ML DAILY
     Route: 048
     Dates: start: 2024
  2. PREDNISONE [Suspect]
     Active Substance: PREDNISONE
     Indication: Duchenne muscular dystrophy
     Dosage: UNKNOWN
     Route: 065
  3. CHILDRENS TYLENOL [Concomitant]
     Active Substance: ACETAMINOPHEN
     Indication: Product used for unknown indication
     Dosage: 7.5 ML AS NEEDED
     Route: 065
  4. CHILDRENS MOTRIN [Concomitant]
     Active Substance: IBUPROFEN
     Indication: Product used for unknown indication
     Dosage: 7.5 ML AS NEEDED
     Route: 065
  5. CHILDREN^S ALLERGY RELIEF [Concomitant]
     Indication: Product used for unknown indication
     Dosage: 10 ML AS NEEDED
     Route: 065
  6. DIMETAPP COLD + COUGH [Concomitant]
     Indication: Product used for unknown indication
     Dosage: 10 ML AS NEEDED
     Route: 065
  7. ZARBEE^S SLEEP MELATONIN [Concomitant]
     Indication: Product used for unknown indication
     Dosage: 2 MG AS NEEDED
     Route: 065

REACTIONS (2)
  - Frustration tolerance decreased [Unknown]
  - Behaviour disorder [Unknown]

NARRATIVE: CASE EVENT DATE: 20240401
